FAERS Safety Report 8249915-7 (Version None)
Quarter: 2012Q2

REPORT INFORMATION
  Report Type: 
  Country: None (occurrence: None)
  Receive Date: 20120402
  Receipt Date: 20120330
  Transmission Date: 20120825
  Serious: Yes (Other)
  Sender: FDA-Public Use
  Company Number: PHHY2012IT011579

PATIENT
  Sex: Female

DRUGS (1)
  1. ZOMETA [Suspect]
     Indication: METASTASES TO BONE
     Dosage: 4 MG, 1 POSOLOGIC UNIT CYCLIC
     Route: 042
     Dates: start: 20101212, end: 20110412

REACTIONS (1)
  - OSTEONECROSIS OF JAW [None]
